FAERS Safety Report 7050310-7 (Version None)
Quarter: 2010Q4

REPORT INFORMATION
  Report Type: 
  Country: None (occurrence: None)
  Receive Date: 20101018
  Receipt Date: 20101012
  Transmission Date: 20110411
  Serious: Yes (Life-Threatening, Hospitalization, Other)
  Sender: FDA-Public Use
  Company Number: DE-CEPHALON-2010005288

PATIENT
  Sex: Male
  Weight: 70 kg

DRUGS (1)
  1. MODAFINIL [Suspect]
     Indication: NARCOLEPSY
     Route: 048
     Dates: start: 20000101

REACTIONS (3)
  - ATRIOVENTRICULAR BLOCK COMPLETE [None]
  - BACK PAIN [None]
  - NERVOUS SYSTEM DISORDER [None]
